FAERS Safety Report 17096185 (Version 1)
Quarter: 2019Q4

REPORT INFORMATION
  Report Type: Spontaneous
  Country: US (occurrence: US)
  Receive Date: 20191202
  Receipt Date: 20191202
  Transmission Date: 20200122
  Serious: Yes (Hospitalization)
  Sender: FDA-Public Use
  Company Number: US-SA-2019SA332435

PATIENT
  Age: 43 Year
  Sex: Female

DRUGS (24)
  1. AMMONIUM LACTATE. [Concomitant]
     Active Substance: AMMONIUM LACTATE
  2. ALBUTEROL [SALBUTAMOL] [Concomitant]
     Active Substance: ALBUTEROL
  3. ADMELOG [Concomitant]
     Active Substance: INSULIN LISPRO
  4. RANITIDINE. [Concomitant]
     Active Substance: RANITIDINE
  5. HYDROCHLOROTH [Concomitant]
     Active Substance: HYDROCHLOROTHIAZIDE
  6. GLIMEPIRIDE. [Concomitant]
     Active Substance: GLIMEPIRIDE
  7. FAMOTIDINE. [Concomitant]
     Active Substance: FAMOTIDINE
  8. ONDANSETRON [Concomitant]
     Active Substance: ONDANSETRON
  9. METFORMIN [Concomitant]
     Active Substance: METFORMIN HYDROCHLORIDE
  10. INCRUSE ELLIPTA [Concomitant]
     Active Substance: UMECLIDINIUM BROMIDE
     Route: 055
  11. HYDROCHLOROTH [Concomitant]
     Active Substance: HYDROCHLOROTHIAZIDE
  12. MONTELUKAST [Concomitant]
     Active Substance: MONTELUKAST SODIUM
  13. FENOFIBRATE. [Concomitant]
     Active Substance: FENOFIBRATE
  14. LISINOPRIL. [Concomitant]
     Active Substance: LISINOPRIL
  15. PREDNISONE. [Concomitant]
     Active Substance: PREDNISONE
  16. PIOGLITAZONE. [Concomitant]
     Active Substance: PIOGLITAZONE
  17. CYCLOBENZAPRIN [Concomitant]
     Active Substance: CYCLOBENZAPRINE
  18. CETIRIZINE [Concomitant]
     Active Substance: CETIRIZINE HYDROCHLORIDE
  19. ATORVASTATIN [Concomitant]
     Active Substance: ATORVASTATIN
  20. DUPIXENT [Suspect]
     Active Substance: DUPILUMAB
     Indication: ASTHMA
     Dosage: 300 MG, QOW
     Route: 058
     Dates: start: 20190201
  21. IPRATROPIUM [Concomitant]
     Active Substance: IPRATROPIUM
  22. FLUTICASONE. [Concomitant]
     Active Substance: FLUTICASONE
  23. BASAGLAR [Concomitant]
     Active Substance: INSULIN GLARGINE
  24. AMLODIPINE [Concomitant]
     Active Substance: AMLODIPINE BESYLATE

REACTIONS (2)
  - Pancreatic disorder [Unknown]
  - Product dose omission [Unknown]

NARRATIVE: CASE EVENT DATE: 20191110
